FAERS Safety Report 8796727 (Version 1)
Quarter: 2012Q4

REPORT INFORMATION
  Report Type: 
  Country: US (occurrence: US)
  Receive Date: 20120919
  Receipt Date: 20120919
  Transmission Date: 20130627
  Serious: Yes (Other)
  Sender: FDA-Public Use
  Company Number: US-MERCK-1209USA006047

PATIENT
  Age: 39 Year
  Sex: Female

DRUGS (1)
  1. SAPHRIS [Suspect]
     Dosage: 20 mg, hs
     Route: 048

REACTIONS (3)
  - Tardive dyskinesia [Unknown]
  - Alopecia [Unknown]
  - Loss of libido [Unknown]
